FAERS Safety Report 12680196 (Version 2)
Quarter: 2016Q3

REPORT INFORMATION
  Report Type: Report from Study
  Country: KR (occurrence: KR)
  Receive Date: 20160824
  Receipt Date: 20160922
  Transmission Date: 20161109
  Serious: No
  Sender: FDA-Public Use
  Company Number: PHHY2016KR115427

PATIENT
  Age: 31 Year
  Sex: Male

DRUGS (16)
  1. INSULIN GLARGINE [Concomitant]
     Active Substance: INSULIN GLARGINE
     Indication: DIABETES MELLITUS
     Dosage: UNK UNK, PRN
     Route: 058
     Dates: start: 20151123
  2. ESOMEPRAZOLE [Concomitant]
     Active Substance: ESOMEPRAZOLE
     Indication: GASTRIC HAEMORRHAGE
     Dosage: 320 MG, UNK
     Route: 042
     Dates: start: 20160513, end: 20160513
  3. MINERALS [Concomitant]
     Active Substance: MINERALS
     Indication: VITAMIN SUPPLEMENTATION
     Dosage: 10 ML, UNK
     Route: 042
     Dates: start: 20160513, end: 20160513
  4. PROPOFOL. [Concomitant]
     Active Substance: PROPOFOL
     Indication: PROPHYLAXIS
     Dosage: 20 ML, UNK
     Route: 042
     Dates: start: 20160513, end: 20160513
  5. TASIGNA [Suspect]
     Active Substance: NILOTINIB
     Indication: CHRONIC MYELOID LEUKAEMIA
     Dosage: 800 MG, QD
     Route: 048
     Dates: start: 20160503, end: 20160513
  6. BUSCOPAN [Concomitant]
     Active Substance: BUTYLSCOPOLAMINE BROMIDE
     Indication: GASTRIC HAEMORRHAGE
     Dosage: 20 MG, UNK
     Route: 042
     Dates: start: 20160513, end: 20160513
  7. ESOMEPRAZOLE [Concomitant]
     Active Substance: ESOMEPRAZOLE
     Dosage: 80 MG, UNK
     Route: 042
     Dates: start: 20160516, end: 20160516
  8. ESOMEPRAZOLE [Concomitant]
     Active Substance: ESOMEPRAZOLE
     Dosage: 40 MG, UNK
     Route: 048
     Dates: start: 20160525
  9. TASIGNA [Suspect]
     Active Substance: NILOTINIB
     Dosage: 800 MG, QD
     Route: 048
     Dates: start: 20160517
  10. AMLODIPINE BESYLATE. [Concomitant]
     Active Substance: AMLODIPINE BESYLATE
     Indication: HYPERTENSION
     Dosage: 5 MG, UNK
     Route: 048
     Dates: start: 20150822
  11. ESOMEPRAZOLE [Concomitant]
     Active Substance: ESOMEPRAZOLE
     Dosage: 200 MG, UNK
     Route: 042
     Dates: start: 20160514, end: 20160515
  12. ESOMEPRAZOLE [Concomitant]
     Active Substance: ESOMEPRAZOLE
     Dosage: 80 MG, UNK
     Route: 048
     Dates: start: 20160517, end: 20160524
  13. INDAPAMIDE. [Concomitant]
     Active Substance: INDAPAMIDE
     Indication: HYPERTENSION
     Dosage: 1.5 MG, UNK
     Route: 048
     Dates: start: 20150822
  14. TWYNSTA [Concomitant]
     Active Substance: AMLODIPINE BESYLATE\TELMISARTAN
     Indication: HYPERTENSION
     Dosage: 1 DF, UNK
     Route: 048
     Dates: start: 20150822
  15. AMOXICILLIN. [Concomitant]
     Active Substance: AMOXICILLIN
     Indication: GASTRIC HAEMORRHAGE
     Dosage: 2000 MG, UNK
     Route: 048
     Dates: start: 20160517, end: 20160524
  16. MINERALS [Concomitant]
     Active Substance: MINERALS
     Dosage: 10 ML, UNK
     Route: 042
     Dates: start: 20160515, end: 20160516

REACTIONS (1)
  - Myalgia [Recovered/Resolved]

NARRATIVE: CASE EVENT DATE: 20160505
